FAERS Safety Report 10679227 (Version 1)
Quarter: 2014Q4

REPORT INFORMATION
  Report Type: Spontaneous
  Country: DE (occurrence: DE)
  Receive Date: 20141229
  Receipt Date: 20141229
  Transmission Date: 20150529
  Serious: Yes (Life-Threatening, Hospitalization)
  Sender: FDA-Public Use
  Company Number: DE-TEVA-530189GER

PATIENT
  Age: 44 Year
  Sex: Female

DRUGS (13)
  1. QUILONUM RETARD [Interacting]
     Active Substance: LITHIUM CARBONATE
     Dates: start: 20130301, end: 20130307
  2. QUILONUM RETARD [Interacting]
     Active Substance: LITHIUM CARBONATE
     Dates: start: 20130308, end: 20130313
  3. LORAZEPAM. [Concomitant]
     Active Substance: LORAZEPAM
  4. PANTOZOL [Concomitant]
     Active Substance: PANTOPRAZOLE SODIUM
  5. ELONTRIL [Interacting]
     Active Substance: BUPROPION HYDROCHLORIDE
     Dates: start: 20130315
  6. QUILONUM RETARD [Interacting]
     Active Substance: LITHIUM CARBONATE
     Dates: start: 20130328
  7. QUILONUM RETARD [Interacting]
     Active Substance: LITHIUM CARBONATE
     Dates: start: 20130313
  8. RISPERIDON [Suspect]
     Active Substance: RISPERIDONE
  9. CYMBALTA [Interacting]
     Active Substance: DULOXETINE HYDROCHLORIDE
  10. ELONTRIL [Interacting]
     Active Substance: BUPROPION HYDROCHLORIDE
     Dates: start: 20130206, end: 20130314
  11. ABILIFY [Interacting]
     Active Substance: ARIPIPRAZOLE
     Dates: start: 20121207, end: 20130314
  12. BIPERIDEN [Concomitant]
     Active Substance: BIPERIDEN
  13. ABILIFY [Interacting]
     Active Substance: ARIPIPRAZOLE
     Dates: start: 20121207, end: 20130314

REACTIONS (2)
  - Drug interaction [Unknown]
  - Serotonin syndrome [Recovered/Resolved]

NARRATIVE: CASE EVENT DATE: 20130310
